FAERS Safety Report 15314517 (Version 1)
Quarter: 2018Q3

REPORT INFORMATION
  Report Type: Spontaneous
  Country: US (occurrence: US)
  Receive Date: 20180814
  Receipt Date: 20180814
  Transmission Date: 20181010
  Serious: Yes (Hospitalization)
  Sender: FDA-Public Use
  Company Number: None

PATIENT
  Age: 34 Year
  Sex: Male

DRUGS (1)
  1. ESCITALOPRAM [Suspect]
     Active Substance: ESCITALOPRAM OXALATE
     Indication: ANXIETY
     Route: 048
     Dates: start: 20180424, end: 20180504

REACTIONS (4)
  - Depression [None]
  - Anxiety [None]
  - Post-traumatic stress disorder [None]
  - Insomnia [None]

NARRATIVE: CASE EVENT DATE: 20180504
